FAERS Safety Report 19394937 (Version 1)
Quarter: 2021Q2

REPORT INFORMATION
  Report Type: Spontaneous
  Country: US (occurrence: US)
  Receive Date: 20210609
  Receipt Date: 20210609
  Transmission Date: 20210717
  Serious: Yes (Death, Hospitalization)
  Sender: FDA-Public Use
  Company Number: US-OAKRUM PHARMA-2021OAK00004

PATIENT
  Age: 41 Year
  Sex: Male
  Weight: 58.05 kg

DRUGS (13)
  1. OXYGEN. [Concomitant]
     Active Substance: OXYGEN
     Dosage: UNK, AS NEEDED
     Route: 045
  2. LEUCOVORIN. [Concomitant]
     Active Substance: LEUCOVORIN
     Dosage: 25 MG, 1X/DAY
     Route: 048
  3. AZITHROMYCIN ANHYDROUS. [Concomitant]
     Active Substance: AZITHROMYCIN ANHYDROUS
     Dosage: 1200 MG, 1X/WEEK
     Route: 048
  4. PANTOPRAZOLE [Concomitant]
     Active Substance: PANTOPRAZOLE
     Dosage: 40 MG, 1X/DAY
     Route: 048
  5. IRON [Concomitant]
     Active Substance: IRON
     Dosage: 325 MG, 1X/DAY
     Route: 048
  6. VALTREX [Concomitant]
     Active Substance: VALACYCLOVIR HYDROCHLORIDE
     Dosage: 1 G, EVERY 12 HOURS
     Route: 048
  7. ACETAMINOPHEN. [Concomitant]
     Active Substance: ACETAMINOPHEN
     Dosage: 650 MG, EVERY 6 HOURS AS NEEDED
     Route: 048
  8. SENNA [Concomitant]
     Active Substance: SENNA LEAF\SENNOSIDES\SENNOSIDES A AND B
     Dosage: UNK, 1X/DAY
     Route: 048
  9. PYRIMETHAMINE [Suspect]
     Active Substance: PYRIMETHAMINE
     Indication: TOXOPLASMOSIS
     Dosage: 75 MG, 1X/DAY
     Route: 048
  10. DEXAMETHASONE. [Concomitant]
     Active Substance: DEXAMETHASONE
     Dosage: 4 MG, EVERY 6 HOURS
     Route: 048
  11. SILVADENE [Concomitant]
     Active Substance: SILVER SULFADIAZINE
     Dosage: 1 %, AS NEEDED
     Route: 061
  12. ZOFRAN [Concomitant]
     Active Substance: ONDANSETRON HYDROCHLORIDE
     Dosage: 4 MG, EVERY 8 HOURS AS NEEDED
     Route: 048
  13. SULFADIAZINE. [Concomitant]
     Active Substance: SULFADIAZINE
     Dosage: 500 MG, EVERY 6 HOURS
     Route: 048

REACTIONS (6)
  - Death [Fatal]
  - Tachycardia [Unknown]
  - Unresponsive to stimuli [Unknown]
  - Pyrexia [Unknown]
  - Vomiting [Unknown]
  - Aphasia [Unknown]

NARRATIVE: CASE EVENT DATE: 202105
